FAERS Safety Report 19133640 (Version 1)
Quarter: 2021Q2

REPORT INFORMATION
  Report Type: Spontaneous
  Country: US (occurrence: US)
  Receive Date: 20210414
  Receipt Date: 20210414
  Transmission Date: 20210717
  Serious: Yes (Hospitalization)
  Sender: FDA-Public Use
  Company Number: None

PATIENT
  Age: 69 Year
  Sex: Male
  Weight: 112.3 kg

DRUGS (2)
  1. ALIMTA [Suspect]
     Active Substance: PEMETREXED DISODIUM
     Dates: end: 20210323
  2. CISPLATIN 165 MG [Suspect]
     Active Substance: CISPLATIN
     Dates: end: 20210323

REACTIONS (2)
  - Throat tightness [None]
  - Heart rate increased [None]

NARRATIVE: CASE EVENT DATE: 20210409
